FAERS Safety Report 6037986-8 (Version None)
Quarter: 2009Q1

REPORT INFORMATION
  Report Type: 
  Country: None (occurrence: None)
  Receive Date: 20090113
  Receipt Date: 20090113
  Transmission Date: 20090719
  Serious: Yes (Hospitalization)
  Sender: FDA-Public Use
  Company Number: None

PATIENT
  Sex: Female
  Weight: 15.2 kg

DRUGS (14)
  1. PENTAMIDINE ISETHIONATE [Suspect]
     Indication: PNEUMOCYSTIS JIROVECI INFECTION
     Dosage: 150 MG ONCE A MONTH INHAL
     Dates: start: 20080417
  2. PENTAMIDINE ISETHIONATE [Suspect]
     Indication: PROPHYLAXIS
     Dosage: 150 MG ONCE A MONTH INHAL
     Dates: start: 20080417
  3. PENTAMIDINE ISETHIONATE [Suspect]
     Indication: PNEUMOCYSTIS JIROVECI INFECTION
     Dosage: BETWEEN 110 - 150 MG ONCE A MONTH INHAL
     Dates: start: 20080517, end: 20081103
  4. PENTAMIDINE ISETHIONATE [Suspect]
     Indication: PROPHYLAXIS
     Dosage: BETWEEN 110 - 150 MG ONCE A MONTH INHAL
     Dates: start: 20080517, end: 20081103
  5. VALACYCLOVIR [Concomitant]
  6. VENOGLOBULIN [Concomitant]
  7. NYSTATIN [Concomitant]
  8. HYDROCORTISONE TOPICAL CREAM [Concomitant]
  9. FLUCONAZOLE [Concomitant]
  10. LANSOPRAZOLE [Concomitant]
  11. M.V.I. [Concomitant]
  12. CYCLOSPORINE [Concomitant]
  13. PREDNISONE TAB [Concomitant]
  14. CEFDINIR [Concomitant]

REACTIONS (4)
  - GASTROENTERITIS VIRAL [None]
  - GASTROINTESTINAL MOTILITY DISORDER [None]
  - GRAFT VERSUS HOST DISEASE [None]
  - PANCREATITIS [None]
